FAERS Safety Report 8986137 (Version 2)
Quarter: 2013Q1

REPORT INFORMATION
  Report Type: Spontaneous
  Country: GB (occurrence: None)
  Receive Date: 20121018
  Receipt Date: 20121121
  Transmission Date: 20140127
  Serious: Yes (Other)
  Sender: FDA-Public Use
  Company Number: 219036

PATIENT
  Sex: Male

DRUGS (1)
  1. DAIVOBET OINTMENT (DAIVOBET) [Suspect]
     Indication: PSORIASIS
     Dosage: 2 TO 3 DAYS ON ANY ONE BIT
     Route: 061
     Dates: start: 20120111

REACTIONS (3)
  - Mycosis fungoides [None]
  - Inappropriate schedule of drug administration [None]
  - Incorrect drug administration duration [None]
